FAERS Safety Report 9160967 (Version 2)
Quarter: 2013Q2

REPORT INFORMATION
  Report Type: Spontaneous
  Country: US (occurrence: US)
  Receive Date: 20130313
  Receipt Date: 20130521
  Transmission Date: 20140414
  Serious: Yes (Other)
  Sender: FDA-Public Use
  Company Number: US-PFIZER INC-2013081001

PATIENT
  Sex: Female

DRUGS (5)
  1. VENLAFAXINE HCL [Suspect]
     Dosage: UNK
  2. TRAMADOL HCL [Suspect]
     Indication: BONE PAIN
     Dosage: (PRN 1 - 4X A DAY 1/2 - 1 TAB)
     Route: 048
     Dates: start: 200911, end: 20110920
  3. SEREVENT [Suspect]
     Indication: EMPHYSEMA
     Dosage: UNK, AS NEEDED
     Route: 055
     Dates: start: 2010, end: 2012
  4. SEREVENT [Suspect]
     Indication: SYSTEMIC LUPUS ERYTHEMATOSUS
  5. SEREVENT [Suspect]
     Indication: DYSPNOEA

REACTIONS (7)
  - Major depression [Recovered/Resolved with Sequelae]
  - Drug hypersensitivity [Unknown]
  - Tremor [Recovered/Resolved with Sequelae]
  - Drug ineffective [Recovered/Resolved]
  - Headache [Recovered/Resolved]
  - Nightmare [Recovered/Resolved]
  - Abdominal discomfort [Unknown]
